FAERS Safety Report 7743300-X (Version None)
Quarter: 2011Q3

REPORT INFORMATION
  Report Type: 
  Country: None (occurrence: None)
  Receive Date: 20110825
  Receipt Date: 20110822
  Transmission Date: 20111222
  Serious: Yes (Other)
  Sender: FDA-Public Use
  Company Number: 2011SP039671

PATIENT
  Age: 14 Year
  Sex: Female

DRUGS (1)
  1. SAPHRIS [Suspect]
     Indication: PRODUCT USED FOR UNKNOWN INDICATION
     Dosage: 5 MG;ONCE;SL
     Route: 060

REACTIONS (3)
  - SWOLLEN TONGUE [None]
  - HYPOAESTHESIA ORAL [None]
  - OEDEMA MOUTH [None]
